FAERS Safety Report 16177091 (Version 1)
Quarter: 2019Q2

REPORT INFORMATION
  Report Type: Spontaneous
  Country: US (occurrence: US)
  Receive Date: 20190409
  Receipt Date: 20190409
  Transmission Date: 20190711
  Serious: Yes (Hospitalization, Other)
  Sender: FDA-Public Use
  Company Number: US-ABBVIE-19K-163-2732587-00

PATIENT
  Sex: Female

DRUGS (1)
  1. HUMIRA [Suspect]
     Active Substance: ADALIMUMAB
     Indication: RHEUMATOID ARTHRITIS
     Route: 058
     Dates: end: 20180408

REACTIONS (15)
  - Incoherent [Unknown]
  - Skin haemorrhage [Unknown]
  - Renal failure [Unknown]
  - Gastrointestinal haemorrhage [Unknown]
  - Sepsis [Unknown]
  - Malaise [Unknown]
  - Blood pressure abnormal [Unknown]
  - Anaphylactic shock [Unknown]
  - Respiration abnormal [Unknown]
  - Pain [Unknown]
  - Atrial fibrillation [Unknown]
  - Lung infection [Not Recovered/Not Resolved]
  - Fatigue [Unknown]
  - Dehydration [Unknown]
  - Pneumonia bacterial [Unknown]

NARRATIVE: CASE EVENT DATE: 20180410
